FAERS Safety Report 6030969-3 (Version None)
Quarter: 2009Q1

REPORT INFORMATION
  Report Type: 
  Country: None (occurrence: None)
  Receive Date: 20090106
  Receipt Date: 20081215
  Transmission Date: 20090719
  Serious: Yes (Life-Threatening, Hospitalization, Other)
  Sender: FDA-Public Use
  Company Number: POMP-1000170

PATIENT
  Age: 11 Month
  Sex: Female
  Weight: 8.4 kg

DRUGS (2)
  1. MYOZYME [Suspect]
     Indication: GLYCOGEN STORAGE DISEASE TYPE II
     Dosage: 200 MG, Q2W, INTRAVENOUS
     Route: 042
     Dates: start: 20071015, end: 20080513
  2. MYOZYME [Suspect]
     Indication: GLYCOGEN STORAGE DISEASE TYPE II
     Dosage: 200 MG, Q2W, INTRAVENOUS
     Route: 042
     Dates: start: 20080513

REACTIONS (11)
  - AGITATION [None]
  - BLOOD PRESSURE INCREASED [None]
  - BRONCHIAL OBSTRUCTION [None]
  - BRONCHOSPASM [None]
  - HYPERSENSITIVITY [None]
  - INFUSION RELATED REACTION [None]
  - IRRITABILITY [None]
  - NO THERAPEUTIC RESPONSE [None]
  - NOSOCOMIAL INFECTION [None]
  - PALLOR [None]
  - RESPIRATORY TRACT INFECTION [None]
